FAERS Safety Report 8212605-0 (Version None)
Quarter: 2012Q1

REPORT INFORMATION
  Report Type: 
  Country: None (occurrence: None)
  Receive Date: 20120315
  Receipt Date: 20120306
  Transmission Date: 20120608
  Serious: Yes (Hospitalization)
  Sender: FDA-Public Use
  Company Number: US-BAYER-2011-058714

PATIENT
  Age: 41 Year
  Sex: Female
  Weight: 53.061 kg

DRUGS (11)
  1. HUMALOG [Concomitant]
     Indication: DIABETES MELLITUS
     Dosage: 100 U, UNK
     Route: 058
     Dates: start: 19870101
  2. IBUPROFEN [Concomitant]
     Indication: PAIN
     Dosage: UNK UNK, PRN
     Route: 048
  3. VITAMIN D [Concomitant]
     Indication: SUPPLEMENTATION THERAPY
     Dosage: 1 PILL DAILY
     Route: 048
  4. YASMIN [Suspect]
     Indication: ACNE
     Dosage: UNK
     Dates: start: 20030826, end: 20080513
  5. CALCIUM [Concomitant]
     Indication: SUPPLEMENTATION THERAPY
     Dosage: 1 PILL DAILY
     Route: 048
  6. YASMIN [Suspect]
     Indication: PREMENSTRUAL SYNDROME
  7. YAZ [Suspect]
     Indication: ACNE
     Dosage: UNK
     Route: 048
     Dates: start: 20081102, end: 20090727
  8. YAZ [Suspect]
     Indication: PREMENSTRUAL SYNDROME
  9. DOXYCYCLINE [Concomitant]
     Dosage: UNK
     Route: 048
     Dates: start: 20090120, end: 20100228
  10. ADDERALL XR 10 [Concomitant]
     Indication: ATTENTION DEFICIT/HYPERACTIVITY DISORDER
     Dosage: 20 MG, QD
     Route: 048
     Dates: start: 20090320
  11. LEVOTHYROXINE SODIUM [Concomitant]
     Indication: HYPOTHYROIDISM
     Dosage: 125 MCG/24HR, UNK
     Route: 048
     Dates: start: 19880101

REACTIONS (13)
  - ANXIETY [None]
  - CHILLS [None]
  - NAUSEA [None]
  - VOMITING [None]
  - HYPERHIDROSIS [None]
  - ABDOMINAL PAIN LOWER [None]
  - DIARRHOEA [None]
  - EMBOLISM [None]
  - BURNING SENSATION [None]
  - FEAR [None]
  - EMOTIONAL DISTRESS [None]
  - ABDOMINAL PAIN [None]
  - RENAL INFARCT [None]
